FAERS Safety Report 10268252 (Version 1)
Quarter: 2014Q2

REPORT INFORMATION
  Report Type: Spontaneous
  Country: DE (occurrence: DE)
  Receive Date: 20140630
  Receipt Date: 20140630
  Transmission Date: 20141212
  Serious: Yes (Other)
  Sender: FDA-Public Use
  Company Number: GXKR2014DE002384

PATIENT
  Sex: 0

DRUGS (6)
  1. CITALOPRAM [Suspect]
     Indication: DEPRESSION
     Dosage: 20 [MG/D ]
     Route: 048
     Dates: start: 20130502, end: 20140127
  2. L THYROXIN [Concomitant]
     Indication: HYPOTHYROIDISM
     Dosage: 100 [?G/D ]
     Route: 048
     Dates: start: 20130502, end: 20140127
  3. IBUPROFEN LYSINATE [Concomitant]
     Indication: HEADACHE
     Dosage: 500 MG/D ON DEMAND
     Route: 048
  4. FOLIO FORTE [Concomitant]
     Indication: PROPHYLAXIS OF NEURAL TUBE DEFECT
     Dosage: 0.8 [MG/D ]
     Route: 048
     Dates: start: 20130502, end: 20140127
  5. RENNIE                             /00219301/ [Concomitant]
     Indication: DYSPEPSIA
     Route: 048
     Dates: start: 20130502, end: 20140127
  6. OMEPRAZOLE [Concomitant]
     Indication: GASTRITIS PROPHYLAXIS
     Route: 048

REACTIONS (1)
  - HELLP syndrome [Recovered/Resolved]
